FAERS Safety Report 9277238 (Version 1)
Quarter: 2013Q2

REPORT INFORMATION
  Report Type: Spontaneous
  Country: US (occurrence: US)
  Receive Date: 20130508
  Receipt Date: 20130508
  Transmission Date: 20140414
  Serious: No
  Sender: FDA-Public Use
  Company Number: US-009507513-1305USA000614

PATIENT
  Age: 67 Year
  Sex: Male

DRUGS (2)
  1. SINGULAIR [Suspect]
     Dosage: UNK
     Route: 048
     Dates: start: 20130403, end: 20130429
  2. GABAPENTIN [Concomitant]

REACTIONS (2)
  - Prostatic pain [Unknown]
  - Discomfort [Unknown]
